FAERS Safety Report 7625184-3 (Version None)
Quarter: 2011Q3

REPORT INFORMATION
  Report Type: 
  Country: None (occurrence: None)
  Receive Date: 20110721
  Receipt Date: 20110711
  Transmission Date: 20111222
  Serious: Yes (Other)
  Sender: FDA-Public Use
  Company Number: IN-AMGEN-INDCT2011035983

PATIENT
  Age: 58 Year
  Sex: Female

DRUGS (8)
  1. SULFASALAZINE [Concomitant]
     Dosage: UNK
  2. HYDROXYCHLOROQUINE SULFATE [Concomitant]
     Dosage: 400 MG, DAILY
  3. BISOPROLOL [Concomitant]
     Indication: HYPERTENSION
     Dosage: UNK
  4. ETANERCEPT [Suspect]
     Indication: RHEUMATOID ARTHRITIS
     Dosage: 25 MG, 2X/WEEK
     Dates: end: 20011101
  5. METFORMIN HCL [Concomitant]
     Indication: TYPE 2 DIABETES MELLITUS
     Dosage: UNK
  6. METHOTREXATE [Concomitant]
     Dosage: UNK
     Route: 048
  7. AMLODIPINE [Concomitant]
     Indication: HYPERTENSION
     Dosage: UNK
  8. CYCLOSPORINE [Concomitant]

REACTIONS (1)
  - SYSTEMIC LUPUS ERYTHEMATOSUS [None]
